FAERS Safety Report 8834541 (Version 1)
Quarter: 2012Q4

REPORT INFORMATION
  Report Type: 
  Country: AT (occurrence: AT)
  Receive Date: 20121010
  Receipt Date: 20121010
  Transmission Date: 20130627
  Serious: Yes (Hospitalization)
  Sender: FDA-Public Use
  Company Number: AT-ASTRAZENECA-2012SE76024

PATIENT
  Age: 37 Year
  Sex: Female
  Weight: 67 kg

DRUGS (6)
  1. SEROQUEL [Suspect]
     Route: 048
     Dates: start: 20111203, end: 20111218
  2. SEROQUEL [Suspect]
     Route: 048
     Dates: start: 20111219, end: 20120108
  3. GLADEM [Suspect]
     Dates: start: 20111130, end: 20111218
  4. DEPAKINE [Suspect]
     Dates: start: 1999, end: 20111217
  5. DEPAKINE [Suspect]
     Dates: start: 20111218, end: 20111229
  6. PRAXITEN [Suspect]
     Dates: start: 20111130, end: 20120102

REACTIONS (2)
  - Grand mal convulsion [Recovered/Resolved]
  - Alopecia [Not Recovered/Not Resolved]
